FAERS Safety Report 7412414-6 (Version None)
Quarter: 2011Q2

REPORT INFORMATION
  Report Type: 
  Country: None (occurrence: None)
  Receive Date: 20110408
  Receipt Date: 20110408
  Transmission Date: 20111010
  Serious: Yes (Hospitalization, Disabling)
  Sender: FDA-Public Use
  Company Number: None

PATIENT
  Age: 68 Year
  Sex: Male
  Weight: 63 kg

DRUGS (1)
  1. VANCOMYCIN [Suspect]
     Indication: STAPHYLOCOCCAL INFECTION
     Dosage: 1.25 GRAMS EVERY 12 HOURS IV
     Route: 042
     Dates: start: 20110320, end: 20110323

REACTIONS (5)
  - HAEMODIALYSIS [None]
  - POST PROCEDURAL HAEMORRHAGE [None]
  - RENAL TUBULAR NECROSIS [None]
  - INTERMITTENT CLAUDICATION [None]
  - HYPOTENSION [None]
